FAERS Safety Report 17063164 (Version 1)
Quarter: 2019Q4

REPORT INFORMATION
  Report Type: Spontaneous
  Country: US (occurrence: US)
  Receive Date: 20191121
  Receipt Date: 20191121
  Transmission Date: 20200122
  Serious: Yes (Other)
  Sender: FDA-Public Use
  Company Number: None

PATIENT
  Age: 73 Year
  Sex: Female
  Weight: 50.4 kg

DRUGS (1)
  1. KRYSTEXXA [Suspect]
     Active Substance: PEGLOTICASE
     Indication: GOUT
     Dosage: ?          OTHER FREQUENCY:EVERY 2 WEEKS;?
     Route: 041
     Dates: start: 20191010, end: 20191121

REACTIONS (6)
  - Dizziness [None]
  - Infusion related reaction [None]
  - Pruritus [None]
  - Throat irritation [None]
  - Heart rate increased [None]
  - Blood pressure decreased [None]

NARRATIVE: CASE EVENT DATE: 20191121
